FAERS Safety Report 8957360 (Version 2)
Quarter: 2015Q2

REPORT INFORMATION
  Report Type: Report from Study
  Country: FR (occurrence: FR)
  Receive Date: 20121210
  Receipt Date: 20150415
  Transmission Date: 20150821
  Serious: Yes (Death, Hospitalization)
  Sender: FDA-Public Use
  Company Number: FR-ROCHE-1165246

PATIENT
  Age: 62 Year
  Sex: Female

DRUGS (2)
  1. CORTANCYL [Concomitant]
     Active Substance: PREDNISONE
     Route: 065
  2. RITUXIMAB [Suspect]
     Active Substance: RITUXIMAB
     Indication: RHEUMATOID ARTHRITIS
     Route: 042
     Dates: start: 20061228

REACTIONS (8)
  - Adenocarcinoma [Fatal]
  - Skin necrosis [Not Recovered/Not Resolved]
  - Arthrodesis [Not Recovered/Not Resolved]
  - Cell death [Recovered/Resolved]
  - Metastasis [Fatal]
  - Cholangitis [Fatal]
  - Cholestasis [Recovered/Resolved]
  - Post procedural complication [Not Recovered/Not Resolved]

NARRATIVE: CASE EVENT DATE: 20070110
